FAERS Safety Report 9608304 (Version 1)
Quarter: 2013Q4

REPORT INFORMATION
  Report Type: Spontaneous
  Country: US (occurrence: US)
  Receive Date: 20131009
  Receipt Date: 20131009
  Transmission Date: 20140711
  Serious: Yes (Other)
  Sender: FDA-Public Use
  Company Number: US-PFIZER INC-2013285463

PATIENT
  Age: 77 Year
  Sex: Female
  Weight: 77.1 kg

DRUGS (3)
  1. TOVIAZ [Suspect]
     Indication: HYPERTONIC BLADDER
     Dosage: 4 MG, 1X/DAY
     Dates: start: 201309, end: 2013
  2. DIOVAN [Concomitant]
     Indication: HYPERTENSION
     Dosage: 160 MG, 1X/DAY
  3. CORGARD [Concomitant]
     Dosage: 20 MG, 1X/DAY

REACTIONS (1)
  - Chest discomfort [Recovered/Resolved]
